FAERS Safety Report 7551455-5 (Version None)
Quarter: 2011Q2

REPORT INFORMATION
  Report Type: 
  Country: None (occurrence: None)
  Receive Date: 20110616
  Receipt Date: 20110611
  Transmission Date: 20111010
  Serious: Yes (Other)
  Sender: FDA-Public Use
  Company Number: CN-ROCHE-781802

PATIENT
  Age: 39 Year
  Sex: Female
  Weight: 44 kg

DRUGS (9)
  1. HERCEPTIN [Suspect]
     Route: 041
     Dates: start: 20110520
  2. DOCETAXEL [Concomitant]
     Route: 041
     Dates: start: 20110318, end: 20110318
  3. HERCEPTIN [Suspect]
     Route: 041
     Dates: start: 20110512, end: 20110512
  4. HERCEPTIN [Suspect]
     Dosage: INITIAL DOSE AS 360 MG.
     Route: 041
     Dates: start: 20110318, end: 20110318
  5. HERCEPTIN [Suspect]
     Route: 041
     Dates: start: 20110415, end: 20110415
  6. CISPLATIN [Concomitant]
     Route: 041
     Dates: start: 20110520, end: 20110520
  7. HERCEPTIN [Suspect]
     Route: 041
     Dates: start: 20110408, end: 20110408
  8. DEXAMETHASONE [Concomitant]
  9. HERCEPTIN [Suspect]
     Route: 041
     Dates: start: 20110506, end: 20110506

REACTIONS (4)
  - SYNCOPE [None]
  - OVERDOSE [None]
  - BRAIN OEDEMA [None]
  - MUSCLE SPASMS [None]
